FAERS Safety Report 25472134 (Version 1)
Quarter: 2025Q2

REPORT INFORMATION
  Report Type: Spontaneous
  Country: JP (occurrence: JP)
  Receive Date: 20250624
  Receipt Date: 20250624
  Transmission Date: 20250717
  Serious: Yes (Hospitalization, Other)
  Sender: EXELIXIS
  Company Number: JP-TAKEDA-2025TJP006109

PATIENT
  Age: 6 Decade
  Sex: Male

DRUGS (2)
  1. CABOMETYX [Suspect]
     Active Substance: CABOZANTINIB S-MALATE
     Indication: Renal cancer metastatic
     Route: 048
  2. NIVOLUMAB [Suspect]
     Active Substance: NIVOLUMAB
     Indication: Renal cancer metastatic
     Route: 065

REACTIONS (1)
  - Cytokine release syndrome [Not Recovered/Not Resolved]
